FAERS Safety Report 9641176 (Version 1)
Quarter: 2013Q4

REPORT INFORMATION
  Report Type: Spontaneous
  Country: US (occurrence: US)
  Receive Date: 20131023
  Receipt Date: 20131023
  Transmission Date: 20140711
  Serious: Yes (Other)
  Sender: FDA-Public Use
  Company Number: US-PFIZER INC-2013300556

PATIENT
  Age: 74 Year
  Sex: Male
  Weight: 72.6 kg

DRUGS (1)
  1. LEVOTHYROXINE SODIUM [Suspect]
     Indication: THYROID DISORDER
     Dosage: 112 UG, UNK
     Dates: start: 201308, end: 201309

REACTIONS (2)
  - Hypersensitivity [Unknown]
  - Dyspnoea [Unknown]
